FAERS Safety Report 6685919-3 (Version None)
Quarter: 2010Q2

REPORT INFORMATION
  Report Type: 
  Country: None (occurrence: None)
  Receive Date: 20100419
  Receipt Date: 20100319
  Transmission Date: 20101027
  Serious: No
  Sender: FDA-Public Use
  Company Number: US-BAYER-201013462BCC

PATIENT
  Age: 42 Year
  Sex: Male
  Weight: 113 kg

DRUGS (1)
  1. MIDOL [Suspect]
     Indication: DRUG USE FOR UNKNOWN INDICATION
     Route: 048
     Dates: start: 20100319

REACTIONS (3)
  - FEELING COLD [None]
  - FEELING HOT [None]
  - TREMOR [None]
